FAERS Safety Report 6800759-X (Version None)
Quarter: 2010Q2

REPORT INFORMATION
  Report Type: 
  Country: None (occurrence: None)
  Receive Date: 20100629
  Receipt Date: 20100625
  Transmission Date: 20101027
  Serious: Yes (Death)
  Sender: FDA-Public Use
  Company Number: GB-JNJFOC-20080304375

PATIENT
  Age: 88 Year
  Sex: Male

DRUGS (6)
  1. PALIPERIDONE [Suspect]
     Indication: DRUG USE FOR UNKNOWN INDICATION
     Route: 048
  2. ACETYLSALICYLIC ACID [Concomitant]
     Indication: PROPHYLAXIS
  3. ACETYLSALICYLIC ACID [Concomitant]
     Indication: TRANSIENT ISCHAEMIC ATTACK
  4. METOPROLOL [Concomitant]
     Indication: TYPE 2 DIABETES MELLITUS
  5. ATORVASTATIN CALCIUM [Concomitant]
     Indication: TYPE 2 DIABETES MELLITUS
  6. INSULIN [Concomitant]
     Indication: TYPE 2 DIABETES MELLITUS

REACTIONS (1)
  - MYOCARDIAL INFARCTION [None]
